FAERS Safety Report 7960139-0 (Version None)
Quarter: 2011Q4

REPORT INFORMATION
  Report Type: 
  Country: None (occurrence: None)
  Receive Date: 20111206
  Receipt Date: 20111130
  Transmission Date: 20120403
  Serious: Yes (Other)
  Sender: FDA-Public Use
  Company Number: PHHY2011PK104543

PATIENT
  Age: 65 Year
  Sex: Female

DRUGS (2)
  1. INSULIN INJECTION [Concomitant]
     Indication: DIABETES MELLITUS
     Dosage: BID
     Route: 058
     Dates: start: 20010101
  2. ZOLEDRONOC ACID [Suspect]
     Indication: OSTEOPOROSIS
     Route: 042
     Dates: start: 20101211

REACTIONS (5)
  - PLEURAL EFFUSION [None]
  - SWELLING [None]
  - DYSPNOEA [None]
  - CARDIOMEGALY [None]
  - DYSGEUSIA [None]
